FAERS Safety Report 12267231 (Version 2)
Quarter: 2016Q2

REPORT INFORMATION
  Report Type: Spontaneous
  Country: US (occurrence: US)
  Receive Date: 20160414
  Receipt Date: 20160614
  Transmission Date: 20160815
  Serious: Yes (Other)
  Sender: FDA-Public Use
  Company Number: US-ACORDA-ACO_122788_2016

PATIENT
  Age: 58 Year
  Sex: Female
  Weight: 71.66 kg

DRUGS (3)
  1. OXYCODONE [Suspect]
     Active Substance: OXYCODONE
     Indication: BREAKTHROUGH PAIN
     Dosage: UNK
     Route: 065
     Dates: end: 201511
  2. XANAX [Suspect]
     Active Substance: ALPRAZOLAM
     Indication: ANXIETY
     Dosage: 1 MG, QID
     Route: 048
     Dates: start: 1985, end: 201511
  3. ZANAFLEX [Suspect]
     Active Substance: TIZANIDINE HYDROCHLORIDE
     Indication: SPINAL CORD INJURY
     Dosage: 4 MG, UNK
     Route: 048

REACTIONS (16)
  - Blood pressure increased [Not Recovered/Not Resolved]
  - Tinnitus [Not Recovered/Not Resolved]
  - Breast swelling [Not Recovered/Not Resolved]
  - Sneezing [Unknown]
  - Adverse event [Not Recovered/Not Resolved]
  - Drug dependence [Not Recovered/Not Resolved]
  - Decreased interest [Not Recovered/Not Resolved]
  - Off label use [Unknown]
  - Swelling [Not Recovered/Not Resolved]
  - Feeling abnormal [Recovered/Resolved]
  - Feeling hot [Not Recovered/Not Resolved]
  - Anxiety [Unknown]
  - Obesity [Unknown]
  - Pain [None]
  - Anger [Not Recovered/Not Resolved]
  - Nasal congestion [Unknown]

NARRATIVE: CASE EVENT DATE: 201511
